FAERS Safety Report 21578677 (Version 2)
Quarter: 2024Q3

REPORT INFORMATION
  Report Type: Report from Study
  Country: AE (occurrence: None)
  Receive Date: 20221110
  Receipt Date: 20240807
  Transmission Date: 20241016
  Serious: Yes (Other)
  Sender: ASTRAZENECA
  Company Number: 2022A362494

PATIENT
  Sex: Female

DRUGS (2)
  1. LYNPARZA [Suspect]
     Active Substance: OLAPARIB
     Route: 048
     Dates: start: 20220924, end: 20220927
  2. LYNPARZA [Suspect]
     Active Substance: OLAPARIB
     Route: 048
     Dates: start: 20221026

REACTIONS (7)
  - Neoplasm malignant [Unknown]
  - Rheumatoid arthritis [Unknown]
  - Arthralgia [Unknown]
  - Gait inability [Unknown]
  - Movement disorder [Unknown]
  - Immunodeficiency [Unknown]
  - Product use issue [Unknown]

NARRATIVE: CASE EVENT DATE: 20220926
